FAERS Safety Report 17431173 (Version 1)
Quarter: 2020Q1

REPORT INFORMATION
  Report Type: Spontaneous
  Country: US (occurrence: US)
  Receive Date: 20200217
  Receipt Date: 20200217
  Transmission Date: 20200409
  Serious: No
  Sender: FDA-Public Use
  Company Number: None

PATIENT
  Age: 57 Year
  Sex: Female
  Weight: 78.75 kg

DRUGS (6)
  1. DAILY VITAMIN [Concomitant]
     Active Substance: VITAMINS
  2. EMGALITY [Suspect]
     Active Substance: GALCANEZUMAB-GNLM
     Indication: MIGRAINE
     Dosage: ?          OTHER ROUTE:BELLY INJECTION?
     Dates: start: 20190715, end: 20190915
  3. PREMPRO [Concomitant]
     Active Substance: ESTROGENS, CONJUGATED\MEDROXYPROGESTERONE ACETATE
  4. LEVOTHROXINE [Concomitant]
     Active Substance: LEVOTHYROXINE
  5. LOSARTIN [Concomitant]
     Active Substance: LOSARTAN
  6. VERAPAMIL [Concomitant]
     Active Substance: VERAPAMIL HYDROCHLORIDE

REACTIONS (2)
  - Asthenia [None]
  - Dizziness [None]

NARRATIVE: CASE EVENT DATE: 20190715
